FAERS Safety Report 8578977-2 (Version None)
Quarter: 2012Q3

REPORT INFORMATION
  Report Type: 
  Country: None (occurrence: None)
  Receive Date: 20120808
  Receipt Date: 20120801
  Transmission Date: 20120928
  Serious: Yes (Other)
  Sender: FDA-Public Use
  Company Number: BR-PFIZER INC-2012187897

PATIENT
  Age: 50 Year
  Sex: Female

DRUGS (3)
  1. DORFLEX [Suspect]
     Dosage: UNK
  2. LYRICA [Suspect]
     Indication: FIBROMYALGIA
     Dosage: 75 MG, 2X/DAY
     Route: 048
  3. MUSCULARE [Suspect]
     Dosage: UNK

REACTIONS (2)
  - TREMOR [None]
  - PIRIFORMIS SYNDROME [None]
